FAERS Safety Report 9239802 (Version 1)
Quarter: 2013Q2

REPORT INFORMATION
  Report Type: Spontaneous
  Country: BR (occurrence: BR)
  Receive Date: 20130418
  Receipt Date: 20130418
  Transmission Date: 20140414
  Serious: Yes (Other)
  Sender: FDA-Public Use
  Company Number: BR-PFIZER INC-2013118942

PATIENT
  Age: 77 Year
  Sex: Female
  Weight: 86 kg

DRUGS (9)
  1. LIPITOR [Suspect]
     Dosage: 20 MG (HALF OF 40MG TABLET), DAILY
     Route: 048
     Dates: start: 20081117, end: 2012
  2. ATENOLOL [Concomitant]
     Indication: CARDIAC DISORDER
     Dosage: 25 MG, EVERY TWELVE HOURS
     Dates: start: 201303
  3. LOSARTAN [Concomitant]
     Dosage: 50 MG, DAILY
     Dates: start: 201303
  4. MONOCORDIL [Concomitant]
     Indication: CARDIAC DISORDER
     Dosage: 20 MG, 2X/DAY
     Dates: start: 201301, end: 201303
  5. SERTRALINE [Concomitant]
     Indication: ANTIDEPRESSANT THERAPY
     Dosage: 50 MG, DAILY
     Dates: start: 201211
  6. SIMVASTATIN [Concomitant]
     Indication: BLOOD CHOLESTEROL
     Dosage: 20 MG, AT NIGHT
     Dates: start: 201303
  7. SOMALGIN [Concomitant]
     Indication: ANTICOAGULANT THERAPY
     Dosage: 100 MG, DAILY
     Dates: start: 201301
  8. VITAMIN D [Concomitant]
     Dosage: 5 GTT, DAILY
     Dates: start: 201212
  9. HYDROCHLOROTHIAZIDE [Concomitant]
     Indication: BLOOD PRESSURE INCREASED
     Dosage: 12.5 MG (HALF OF 25 MG TABLET),DAILY

REACTIONS (6)
  - Glaucoma [Unknown]
  - Cataract [Unknown]
  - Venous occlusion [Unknown]
  - Intraocular pressure increased [Unknown]
  - Gastritis [Not Recovered/Not Resolved]
  - Oesophagitis [Not Recovered/Not Resolved]
